FAERS Safety Report 6254797-9 (Version None)
Quarter: 2009Q3

REPORT INFORMATION
  Report Type: 
  Country: None (occurrence: None)
  Receive Date: 20090702
  Receipt Date: 20090623
  Transmission Date: 20100115
  Serious: Yes (Other)
  Sender: FDA-Public Use
  Company Number: CO-PFIZER INC-2009233520

PATIENT
  Age: 60 Year

DRUGS (5)
  1. XALATAN [Suspect]
     Indication: GLAUCOMA
     Dosage: 1 GTT, 1X/DAY
     Route: 047
     Dates: start: 20070205
  2. COSOPT [Concomitant]
     Indication: GLAUCOMA
     Dosage: 2 GTT, 1X/DAY
     Route: 047
  3. VISCOTEARS [Concomitant]
     Indication: DRY EYE
     Dosage: UNK
     Route: 047
  4. METHOTREXATE [Concomitant]
     Indication: ARTHRITIS
     Dosage: 2.5 MG, EVERY 8 DAYS
     Route: 048
  5. MEDROL [Concomitant]
     Indication: ARTHRITIS
     Dosage: 4 MG, 1X/DAY
     Route: 048

REACTIONS (2)
  - GLAUCOMA [None]
  - THROMBOSIS [None]
